FAERS Safety Report 6113123-6 (Version None)
Quarter: 2009Q1

REPORT INFORMATION
  Report Type: 
  Country: None (occurrence: None)
  Receive Date: 20090312
  Receipt Date: 20090304
  Transmission Date: 20090719
  Serious: Yes (Disabling, Other)
  Sender: FDA-Public Use
  Company Number: US-MERCK-0812USA00484

PATIENT
  Age: 68 Year
  Sex: Male
  Weight: 80 kg

DRUGS (4)
  1. FOSAMAX [Suspect]
     Indication: OSTEOPOROSIS
     Route: 048
     Dates: start: 20030901, end: 20040101
  2. ACTONEL [Suspect]
     Indication: OSTEOPOROSIS
     Route: 048
     Dates: start: 20041201, end: 20060801
  3. INSULIN HUMAN, ISOPHANE [Concomitant]
     Route: 065
  4. HYDROCHLOROTHIAZIDE [Concomitant]
     Indication: HYPERTENSION
     Route: 048

REACTIONS (13)
  - ADVERSE DRUG REACTION [None]
  - ANOREXIA [None]
  - BLADDER OBSTRUCTION [None]
  - BREAST TENDERNESS [None]
  - COLON ADENOMA [None]
  - DIABETIC RETINOPATHY [None]
  - ERECTILE DYSFUNCTION [None]
  - EXOSTOSIS [None]
  - HYPERLIPIDAEMIA [None]
  - NERVOUSNESS [None]
  - OSTEONECROSIS [None]
  - PROSTATISM [None]
  - URINARY RETENTION POSTOPERATIVE [None]
